FAERS Safety Report 11201683 (Version 1)
Quarter: 2015Q2

REPORT INFORMATION
  Report Type: Spontaneous
  Country: US (occurrence: US)
  Receive Date: 20150619
  Receipt Date: 20150619
  Transmission Date: 20150821
  Serious: Yes (Hospitalization, Other)
  Sender: FDA-Public Use
  Company Number: US-TEVA-571673USA

PATIENT
  Age: 57 Year
  Sex: Female
  Weight: 110 kg

DRUGS (8)
  1. BACLOFEN. [Suspect]
     Active Substance: BACLOFEN
     Indication: MUSCLE SPASMS
     Route: 065
  2. ASPIRIN. [Concomitant]
     Active Substance: ASPIRIN
     Route: 065
  3. SIMVASTATIN. [Concomitant]
     Active Substance: SIMVASTATIN
     Dosage: PRN DOSING
     Route: 065
  4. METOPROLOL [Concomitant]
     Active Substance: METOPROLOL
     Route: 065
  5. INSULIN ASPART [Concomitant]
     Active Substance: INSULIN ASPART
     Route: 065
  6. GABAPENTIN. [Concomitant]
     Active Substance: GABAPENTIN
     Route: 065
  7. INSULIN GLARGINE [Concomitant]
     Active Substance: INSULIN GLARGINE
     Dosage: PRN DOSING
     Route: 065
  8. THIAMAZOLE [Concomitant]
     Active Substance: METHIMAZOLE
     Dosage: 5MG HALF TABLET ONCE A DAY
     Route: 065

REACTIONS (3)
  - Hypotonia [Recovered/Resolved]
  - Toxicity to various agents [Recovered/Resolved]
  - Encephalopathy [Recovered/Resolved]
